FAERS Safety Report 4727248-0 (Version None)
Quarter: 2005Q3

REPORT INFORMATION
  Report Type: 
  Country: None (occurrence: None)
  Receive Date: 20050728
  Receipt Date: 20050718
  Transmission Date: 20060218
  Serious: Yes (Other)
  Sender: FDA-Public Use
  Company Number: US-GLAXOSMITHKLINE-A0566775A

PATIENT
  Sex: Male

DRUGS (2)
  1. PAXIL [Suspect]
     Indication: DRUG USE FOR UNKNOWN INDICATION
     Route: 048
  2. LEXAPRO [Suspect]
     Indication: DRUG USE FOR UNKNOWN INDICATION

REACTIONS (10)
  - AGGRESSION [None]
  - DYSGRAPHIA [None]
  - FEAR [None]
  - IMPAIRED DRIVING ABILITY [None]
  - MALAISE [None]
  - MEMORY IMPAIRMENT [None]
  - SELF-INJURIOUS IDEATION [None]
  - THINKING ABNORMAL [None]
  - VISUAL ACUITY REDUCED [None]
  - WEIGHT INCREASED [None]
